FAERS Safety Report 9741208 (Version 1)
Quarter: 2013Q4

REPORT INFORMATION
  Report Type: Spontaneous
  Country: US (occurrence: US)
  Receive Date: 20131209
  Receipt Date: 20131209
  Transmission Date: 20140711
  Serious: No
  Sender: FDA-Public Use
  Company Number: US-BIOGENIDEC-2013BI094772

PATIENT
  Age: 66 Year
  Sex: Female

DRUGS (13)
  1. TECFIDERA [Suspect]
     Indication: MULTIPLE SCLEROSIS
     Route: 048
     Dates: start: 20130916, end: 20130919
  2. BACLOFEN [Concomitant]
  3. NEURONTIN [Concomitant]
  4. FLOMAX [Concomitant]
  5. LISINOPRIL [Concomitant]
  6. HYDRALAZINE [Concomitant]
  7. ALBUTEROL [Concomitant]
  8. NORCO [Concomitant]
  9. BENADRYL [Concomitant]
  10. ASPIRIN [Concomitant]
  11. CALCIUM + VIT D [Concomitant]
  12. ATIVAN [Concomitant]
  13. MORPHINE [Concomitant]

REACTIONS (3)
  - Urinary tract infection [Unknown]
  - Gastrointestinal disorder [Recovered/Resolved]
  - Diarrhoea [Recovered/Resolved]
